FAERS Safety Report 14110391 (Version 1)
Quarter: 2017Q4

REPORT INFORMATION
  Report Type: Spontaneous
  Country: US (occurrence: US)
  Receive Date: 20171019
  Receipt Date: 20171019
  Transmission Date: 20180321
  Serious: Yes (Disabling)
  Sender: FDA-Public Use
  Company Number: None

PATIENT
  Age: 72 Year
  Sex: Male
  Weight: 110.25 kg

DRUGS (26)
  1. TURMERIC [Concomitant]
     Active Substance: HERBALS\TURMERIC
  2. CHROMIUM [Concomitant]
     Active Substance: CHROMIC CHLORIDE\CHROMIUM
  3. VITAMIN D3 [Concomitant]
     Active Substance: CHOLECALCIFEROL
  4. AMLODIPINE [Concomitant]
     Active Substance: AMLODIPINE BESYLATE
  5. ADVIL [Concomitant]
     Active Substance: IBUPROFEN
  6. ZINC. [Concomitant]
     Active Substance: ZINC
  7. GINGER. [Concomitant]
     Active Substance: GINGER
  8. CO-Q 10 [Concomitant]
     Active Substance: UBIDECARENONE
  9. CALCIUM [Concomitant]
     Active Substance: CALCIUM
  10. MSM [Concomitant]
     Active Substance: DIMETHYL SULFONE
  11. VASCEPA [Suspect]
     Active Substance: ICOSAPENT ETHYL
     Indication: BLOOD TRIGLYCERIDES INCREASED
     Dosage: ?          QUANTITY:1 CAPSULE(S);?
     Route: 048
     Dates: start: 20150303, end: 20150501
  12. ASPRIN [Concomitant]
     Active Substance: ASPIRIN
  13. VITAMIN E [Concomitant]
     Active Substance: .ALPHA.-TOCOPHEROL
  14. CINNAMON. [Concomitant]
     Active Substance: CINNAMON
  15. FISH OIL [Concomitant]
     Active Substance: FISH OIL
  16. VITAMIN B12 [Concomitant]
     Active Substance: CYANOCOBALAMIN
  17. SAM E [Concomitant]
  18. CUCUMBER. [Concomitant]
     Active Substance: CUCUMBER
  19. METFORMIN [Concomitant]
     Active Substance: METFORMIN HYDROCHLORIDE
  20. MAGNESIUM [Concomitant]
     Active Substance: MAGNESIUM
  21. PINEAPPLE. [Concomitant]
     Active Substance: PINEAPPLE
  22. CHERRIES [Concomitant]
  23. ENALAPRIL [Concomitant]
     Active Substance: ENALAPRIL
  24. VITAMIN C [Concomitant]
     Active Substance: ASCORBIC ACID
  25. GARLIC. [Concomitant]
     Active Substance: GARLIC
  26. ONIONS [Concomitant]

REACTIONS (12)
  - Mobility decreased [None]
  - Joint crepitation [None]
  - Arthropathy [None]
  - Premature ageing [None]
  - Arthralgia [None]
  - Fall [None]
  - Gait disturbance [None]
  - Dysstasia [None]
  - Muscular weakness [None]
  - Joint range of motion decreased [None]
  - Muscle disorder [None]
  - Pain in extremity [None]

NARRATIVE: CASE EVENT DATE: 20150303
